FAERS Safety Report 6689973-4 (Version None)
Quarter: 2010Q2

REPORT INFORMATION
  Report Type: 
  Country: None (occurrence: None)
  Receive Date: 20100421
  Receipt Date: 20100409
  Transmission Date: 20101027
  Serious: Yes (Other)
  Sender: FDA-Public Use
  Company Number: JP-PFIZER INC-2010046932

PATIENT
  Age: 71 Year
  Sex: Male

DRUGS (3)
  1. SUNITINIB MALATE [Suspect]
     Indication: GASTROINTESTINAL STROMAL TUMOUR
     Dosage: TDD 50 MG,
     Route: 048
     Dates: start: 20100323
  2. CANDESARTAN CILEXETIL [Concomitant]
     Route: 048
  3. NAUZELIN [Concomitant]
     Route: 048

REACTIONS (6)
  - EPILEPSY [None]
  - HAEMATURIA [None]
  - HYPERTENSION [None]
  - LOSS OF CONSCIOUSNESS [None]
  - PYREXIA [None]
  - VOMITING [None]
